FAERS Safety Report 15441245 (Version 1)
Quarter: 2018Q3

REPORT INFORMATION
  Report Type: Spontaneous
  Country: GB (occurrence: ES)
  Receive Date: 20180928
  Receipt Date: 20180928
  Transmission Date: 20181010
  Serious: Yes (Hospitalization)
  Sender: FDA-Public Use
  Company Number: ES-FRESENIUS KABI-FK201809914

PATIENT
  Age: 10 Year
  Sex: Female
  Weight: 23.7 kg

DRUGS (3)
  1. FENTANIL [Concomitant]
     Active Substance: FENTANYL
     Indication: ARTHROSCOPY
     Route: 065
     Dates: start: 20170328, end: 20170328
  2. PROPOFOL (MANUFACTURER UNKNOWN) [Suspect]
     Active Substance: PROPOFOL
     Indication: ARTHROSCOPY
     Route: 042
     Dates: start: 20170328, end: 20170328
  3. SEVOFLURANO [Interacting]
     Active Substance: SEVOFLURANE
     Indication: ARTHROSCOPY
     Route: 055
     Dates: start: 20170328, end: 20170328

REACTIONS (5)
  - Hypotonia [Not Recovered/Not Resolved]
  - Aphasia [Not Recovered/Not Resolved]
  - Mitochondrial enzyme deficiency [Not Recovered/Not Resolved]
  - Drug interaction [Unknown]
  - Dystonia [Not Recovered/Not Resolved]

NARRATIVE: CASE EVENT DATE: 20170331
